FAERS Safety Report 16685429 (Version 2)
Quarter: 2019Q3

REPORT INFORMATION
  Report Type: Report from Study
  Country: US (occurrence: US)
  Receive Date: 20190809
  Receipt Date: 20190903
  Transmission Date: 20191004
  Serious: Yes (Life-Threatening, Hospitalization, Disabling, Other)
  Sender: FDA-Public Use
  Company Number: US-SA-2019SA045652

PATIENT
  Age: 52 Year
  Sex: Female

DRUGS (20)
  1. BACLOFEN. [Concomitant]
     Active Substance: BACLOFEN
     Indication: MUSCLE SPASMS
     Dosage: 10 MG
  2. GABAPENTIN. [Concomitant]
     Active Substance: GABAPENTIN
     Dosage: UNK
  3. OXYCONTIN [Concomitant]
     Active Substance: OXYCODONE HYDROCHLORIDE
     Indication: PAIN
  4. ELIQUIS [Concomitant]
     Active Substance: APIXABAN
  5. OMEPRAZOLE. [Concomitant]
     Active Substance: OMEPRAZOLE
  6. FENTANYL TRANSDERMAL SYSTEM [Concomitant]
     Active Substance: FENTANYL
     Indication: BACK PAIN
     Dosage: 25 MG, EVERY 72 HOURS
     Dates: start: 201602
  7. OXYCONTIN [Concomitant]
     Active Substance: OXYCODONE HYDROCHLORIDE
     Indication: BACK PAIN
     Dosage: UNK
     Route: 048
     Dates: start: 201602
  8. VENTOLIN HFA [Concomitant]
     Active Substance: ALBUTEROL SULFATE
     Dosage: 2 PUFFS, PRN
  9. RELPAX [Concomitant]
     Active Substance: ELETRIPTAN HYDROBROMIDE
     Indication: MIGRAINE
     Dosage: 40 MG, PRN
     Route: 048
     Dates: start: 201701
  10. VALSARTAN. [Concomitant]
     Active Substance: VALSARTAN
     Indication: BLOOD PRESSURE MEASUREMENT
  11. ZANTAC [Concomitant]
     Active Substance: RANITIDINE HYDROCHLORIDE
  12. VIVELLE [Concomitant]
     Active Substance: ESTRADIOL
     Indication: MENOPAUSE
     Dosage: 75 MG
     Dates: start: 2016
  13. ALEMTUZUMAB [Suspect]
     Active Substance: ALEMTUZUMAB
     Dosage: UNK
     Route: 041
     Dates: start: 20161128
  14. PREDNISONE. [Concomitant]
     Active Substance: PREDNISONE
     Dosage: 5 MG, QD
  15. TRAZODONE [Concomitant]
     Active Substance: TRAZODONE HYDROCHLORIDE
     Indication: INSOMNIA
     Dosage: 50 MG, 3 PER NIGHT
     Route: 048
     Dates: start: 201802
  16. LOSARTAN. [Concomitant]
     Active Substance: LOSARTAN
     Indication: BLOOD PRESSURE INCREASED
     Dosage: 1 MG, QD
     Route: 048
     Dates: start: 201501
  17. PANTOPRAZOLE [Concomitant]
     Active Substance: PANTOPRAZOLE
     Indication: GASTROOESOPHAGEAL REFLUX DISEASE
     Dosage: 40 MG, QD
     Route: 048
     Dates: start: 201401
  18. TIZANIDINE. [Concomitant]
     Active Substance: TIZANIDINE
     Indication: MUSCLE SPASMS
     Dosage: 41 MG
     Route: 048
     Dates: start: 201801
  19. ALEMTUZUMAB [Suspect]
     Active Substance: ALEMTUZUMAB
     Indication: MULTIPLE SCLEROSIS
     Dosage: 12 MG, QD
     Route: 041
     Dates: start: 20171218, end: 20171221
  20. MONTELUKAST [Concomitant]
     Active Substance: MONTELUKAST SODIUM
     Indication: SINUSITIS
     Dosage: 10 MG
     Route: 048
     Dates: start: 201501

REACTIONS (19)
  - Platelet count abnormal [Not Recovered/Not Resolved]
  - Contusion [Unknown]
  - Red blood cell count abnormal [Not Recovered/Not Resolved]
  - Blood iron abnormal [Not Recovered/Not Resolved]
  - Amnesia [Unknown]
  - Coagulopathy [Unknown]
  - White blood cell count abnormal [Not Recovered/Not Resolved]
  - Pigmentation disorder [Unknown]
  - ADAMTS13 activity decreased [Unknown]
  - Thrombotic thrombocytopenic purpura [Unknown]
  - Haemorrhage [Unknown]
  - Chromaturia [Unknown]
  - Increased tendency to bruise [Unknown]
  - Anaemia [Not Recovered/Not Resolved]
  - Inappropriate schedule of product administration [Unknown]
  - Thrombosis [Unknown]
  - Skin discolouration [Unknown]
  - Cognitive disorder [Unknown]
  - Blood count abnormal [Unknown]

NARRATIVE: CASE EVENT DATE: 20190108
